FAERS Safety Report 9722164 (Version 2)
Quarter: 2013Q4

REPORT INFORMATION
  Report Type: Spontaneous
  Country: BR (occurrence: BR)
  Receive Date: 20131202
  Receipt Date: 20131223
  Transmission Date: 20140711
  Serious: Yes (Hospitalization)
  Sender: FDA-Public Use
  Company Number: BR-MERCK-1311BRA012521

PATIENT
  Age: 54 Year
  Sex: Female
  Weight: 49 kg

DRUGS (7)
  1. PEGINTRON [Suspect]
     Indication: HEPATITIS C
     Dosage: 80 MICROGRAM, QW
     Route: 058
     Dates: start: 201306
  2. RIBAVIRIN (NON-MERCK) [Concomitant]
     Indication: HEPATITIS C
     Dosage: 500 MG, BID
     Route: 048
     Dates: start: 201306
  3. RIBAVIRIN (NON-MERCK) [Concomitant]
     Dosage: 750 MG, QD
     Route: 048
     Dates: start: 20131106, end: 201311
  4. RIBAVIRIN (NON-MERCK) [Concomitant]
     Dosage: 250 MG, BID
     Route: 048
     Dates: start: 201311
  5. CLONAZEPAM [Concomitant]
     Indication: INSOMNIA
     Dosage: 2 MG, QD
     Route: 048
     Dates: start: 2011
  6. ENALAPRIL MALEATE (ENALAMED) [Concomitant]
     Indication: BLOOD PRESSURE INCREASED
     Dosage: 10 MG, QD
     Route: 048
     Dates: start: 2009
  7. VITAMIN C [Concomitant]
     Indication: APPETITE DISORDER
     Dosage: UNK
     Route: 048
     Dates: start: 201305

REACTIONS (9)
  - Transfusion [Recovered/Resolved]
  - Malaise [Not Recovered/Not Resolved]
  - Anaemia [Recovered/Resolved]
  - Dysgeusia [Not Recovered/Not Resolved]
  - Platelet count decreased [Not Recovered/Not Resolved]
  - Decreased appetite [Recovering/Resolving]
  - Weight decreased [Not Recovered/Not Resolved]
  - Alopecia [Not Recovered/Not Resolved]
  - Depression [Not Recovered/Not Resolved]
